FAERS Safety Report 7209015-1 (Version None)
Quarter: 2011Q1

REPORT INFORMATION
  Report Type: 
  Country: None (occurrence: None)
  Receive Date: 20110104
  Receipt Date: 20110103
  Transmission Date: 20110831
  Serious: Yes (Life-Threatening, Other)
  Sender: FDA-Public Use
  Company Number: TR-PFIZER INC-2011000522

PATIENT
  Age: 30 Year
  Sex: Female

DRUGS (1)
  1. AMPICILLIN SODIUM/SULBACTAM SODIUM [Suspect]
     Indication: CHORIOAMNIONITIS
     Dosage: 1 G, UNK
     Route: 042

REACTIONS (1)
  - ANAPHYLACTIC REACTION [None]
